FAERS Safety Report 24203493 (Version 2)
Quarter: 2024Q3

REPORT INFORMATION
  Report Type: Spontaneous
  Country: JP (occurrence: JP)
  Receive Date: 20240813
  Receipt Date: 20240902
  Transmission Date: 20241017
  Serious: Yes (Hospitalization)
  Sender: ADVANZ PHARMA
  Company Number: JP-SANOFI-AVENTIS R+D-2024SA226941

PATIENT

DRUGS (1)
  1. PLAQUENIL [Suspect]
     Active Substance: HYDROXYCHLOROQUINE SULFATE
     Indication: Systemic lupus erythematosus
     Dosage: UNK (FILM-COATED TABLET)
     Route: 048

REACTIONS (1)
  - Fracture [Unknown]
